FAERS Safety Report 6984134 (Version 3)
Quarter: 2014Q1

REPORT INFORMATION
  Report Type: Spontaneous
  Country: US (occurrence: US)
  Receive Date: 20090501
  Receipt Date: 20140324
  Transmission Date: 20141002
  Serious: Yes (Death, Hospitalization, Other)
  Sender: FDA-Public Use
  Company Number: US-ALEXION-A200700065

PATIENT
  Age: 77 Year
  Sex: Male
  Weight: 98 kg

DRUGS (32)
  1. SOLIRIS 300MG [Suspect]
     Dosage: 600 MG, SINGLE
     Route: 042
     Dates: start: 20070430, end: 20070430
  2. SOLIRIS 300MG [Suspect]
     Dosage: 600 MG, SINGLE
     Route: 042
     Dates: start: 20070507, end: 20070507
  3. SOLIRIS 300MG [Suspect]
     Dosage: 600 MG, SINGLE
     Route: 042
     Dates: start: 20070514, end: 20070514
  4. SOLIRIS 300MG [Suspect]
     Dosage: 600 MG, SINGLE
     Route: 042
     Dates: start: 20070521, end: 20070521
  5. SOLIRIS 300MG [Suspect]
     Dosage: 900 MG, SINGLE
     Route: 042
     Dates: start: 20070528, end: 20070528
  6. SOLIRIS 300MG [Suspect]
     Dosage: 900 MG, SINGLE
     Route: 042
     Dates: start: 20070611, end: 20070611
  7. SOLIRIS 300MG [Suspect]
     Dosage: 900 MG, SINGLE
     Route: 042
     Dates: start: 20070625, end: 20070625
  8. SOLIRIS 300MG [Suspect]
     Dosage: 900 MG, SINGLE
     Route: 042
     Dates: start: 20070709, end: 20070709
  9. SOLIRIS 300MG [Suspect]
     Dosage: 900 MG, SINGLE
     Route: 042
     Dates: start: 20070714, end: 20070714
  10. SOLIRIS 300MG [Suspect]
     Dosage: 900 MG, SINGLE
     Route: 042
     Dates: start: 20070730, end: 20070730
  11. PREDNISONE [Concomitant]
     Dosage: UNK, UNK
  12. PREDNISONE [Concomitant]
     Dosage: 40 MG, QOD
  13. BACTRIM [Concomitant]
     Dosage: 1 TABLET EVERY WEDNESDAY AND FRIDAY
     Route: 048
  14. SYNTHROID [Concomitant]
  15. LIPITOR [Concomitant]
     Dosage: 20 MG, QD, HS
     Route: 048
  16. NEXIUM [Concomitant]
     Dosage: 20 MG, QD
     Route: 048
  17. ACTONEL [Concomitant]
     Dosage: 35 MG, QW
     Route: 048
  18. TOPROL [Concomitant]
  19. FLOMAX RELIEF [Concomitant]
     Dosage: 0.4 MG, QD AFTER EVENING MEAL
  20. ANDROGEL [Concomitant]
  21. QUINIDINE SULFATE [Concomitant]
     Indication: MUSCLE SPASMS
     Dosage: 325 MG, QD, PRN
  22. ALPHAGAN [Concomitant]
  23. TYLENOL W/CODEINE NO. 3 [Concomitant]
     Dosage: 1 TABLET, Q12H, PRN
  24. TYLENOL W/CODEINE NO. 3 [Concomitant]
     Dosage: 15 MG, QD
     Route: 048
  25. TYLENOL W/CODEINE NO. 3 [Concomitant]
     Route: 048
  26. LEXAPRO [Concomitant]
  27. LEXAPRO [Concomitant]
     Dosage: 15 MG, QD
     Route: 048
  28. LISINOPRIL [Concomitant]
     Dosage: 2.5 MG, QD
     Route: 048
  29. FERROUS SULFATE [Concomitant]
     Dosage: 325 MG, BID
     Route: 048
  30. CITRACAL-D [Concomitant]
  31. FOLIC ACID [Concomitant]
     Dosage: 1 MG, QD
     Route: 048
  32. TYLENOL ER [Concomitant]
     Indication: PAIN
     Dosage: 1000 MG, Q6H, PRN

REACTIONS (12)
  - Multi-organ failure [Fatal]
  - Sepsis [Fatal]
  - Cellulitis [Recovering/Resolving]
  - Mental status changes [Unknown]
  - Dyspnoea [Unknown]
  - Renal failure acute [Not Recovered/Not Resolved]
  - Atrial fibrillation [Recovered/Resolved]
  - Dehydration [Unknown]
  - Hyponatraemia [Not Recovered/Not Resolved]
  - Hyperkalaemia [Not Recovered/Not Resolved]
  - Urinary tract infection [Unknown]
  - Drug ineffective [Unknown]
